FAERS Safety Report 6840076-5 (Version None)
Quarter: 2010Q3

REPORT INFORMATION
  Report Type: 
  Country: None (occurrence: None)
  Receive Date: 20100714
  Receipt Date: 20100702
  Transmission Date: 20110219
  Serious: Yes (Hospitalization)
  Sender: FDA-Public Use
  Company Number: US-ROCHE-714567

PATIENT
  Age: 64 Year
  Sex: Female
  Weight: 70 kg

DRUGS (4)
  1. BEVACIZUMAB [Suspect]
     Dosage: WITHDRAWN PERMANENTLY
     Route: 042
     Dates: start: 20100203, end: 20100607
  2. IRINOTECAN HCL [Suspect]
     Dosage: LAST ADMINISTRATION OF DOSE WAS ON 07 JUNE 2010; WITHDRAWN PERMANENTLY
     Route: 042
     Dates: start: 20100203, end: 20100607
  3. FLUOROURACIL [Suspect]
     Dosage: WITHDRAWN PERMANENTLY
     Route: 042
     Dates: start: 20100203, end: 20100607
  4. FOLINIC ACID [Suspect]
     Dosage: WITHDRAWN PERMANENTLY
     Route: 042
     Dates: start: 20100203, end: 20100607

REACTIONS (1)
  - PLEURISY [None]
